FAERS Safety Report 24179406 (Version 3)
Quarter: 2024Q3

REPORT INFORMATION
  Report Type: Spontaneous
  Country: JP (occurrence: JP)
  Receive Date: 20240806
  Receipt Date: 20240909
  Transmission Date: 20241017
  Serious: Yes (Hospitalization, Other)
  Sender: PFIZER
  Company Number: JP-PFIZER INC-202400228955

PATIENT
  Age: 18 Year
  Sex: Male

DRUGS (16)
  1. DOXORUBICIN HYDROCHLORIDE [Suspect]
     Active Substance: DOXORUBICIN HYDROCHLORIDE
     Indication: Osteosarcoma
     Dosage: 55 MG, CYCLIC,  (FIRST DOSE)
  2. DOXORUBICIN HYDROCHLORIDE [Suspect]
     Active Substance: DOXORUBICIN HYDROCHLORIDE
     Dosage: 40 MG, CYCLIC,  (REDUCED)
  3. DOXORUBICIN HYDROCHLORIDE [Suspect]
     Active Substance: DOXORUBICIN HYDROCHLORIDE
     Dosage: 50 MG, CYCLIC,  (IN THE THIRD SESSION)
  4. DOXORUBICIN HYDROCHLORIDE [Suspect]
     Active Substance: DOXORUBICIN HYDROCHLORIDE
     Dosage: 45 MG, CYCLIC, (IN THE FOURTH SESSION)
  5. DOXORUBICIN HYDROCHLORIDE [Suspect]
     Active Substance: DOXORUBICIN HYDROCHLORIDE
     Dosage: 45 MG, CYCLIC,  (IN THE FIFTH SESSION)
  6. CISPLATIN [Suspect]
     Active Substance: CISPLATIN
     Indication: Osteosarcoma
     Dosage: 223 MG, CYCLIC,  (FIRST DOSE)
  7. CISPLATIN [Suspect]
     Active Substance: CISPLATIN
     Dosage: 160 MG, CYCLIC, REDUCED TO
  8. CISPLATIN [Suspect]
     Active Substance: CISPLATIN
     Dosage: 200 MG, CYCLIC,  (IN THE THIRD SESSION)
  9. CISPLATIN [Suspect]
     Active Substance: CISPLATIN
     Dosage: 175 MG, CYCLIC,  (IN THE FOURTH SESSIONS)
  10. CISPLATIN [Suspect]
     Active Substance: CISPLATIN
     Dosage: 175 MG, CYCLIC,  (IN THE FIFTH SESSIONS)
  11. IFOSFAMIDE [Suspect]
     Active Substance: IFOSFAMIDE
     Indication: Osteosarcoma
     Dosage: 5 G, DAILY, 5 DAYS
  12. IFOSFAMIDE [Suspect]
     Active Substance: IFOSFAMIDE
     Dosage: 3 TO 3.4 G/DAY EACH FOR DAYS 1 AND 2
  13. IFOSFAMIDE [Suspect]
     Active Substance: IFOSFAMIDE
     Dosage: 3 G, DAILY, EACH FOR DAYS 3, 4 AND 5
  14. IFOSFAMIDE [Suspect]
     Active Substance: IFOSFAMIDE
     Dosage: 3.4 G, DAILY, EACH FOR DAYS 1 AND 2
  15. IFOSFAMIDE [Suspect]
     Active Substance: IFOSFAMIDE
     Dosage: 3 G, DAILY, EACH FOR DAYS 3 AND 4
  16. METHOTREXATE [Concomitant]
     Active Substance: METHOTREXATE
     Indication: Osteosarcoma
     Dosage: 22.3 G

REACTIONS (2)
  - Tubulointerstitial nephritis [Recovered/Resolved]
  - Fanconi syndrome [Recovered/Resolved]
